FAERS Safety Report 24691955 (Version 2)
Quarter: 2024Q4

REPORT INFORMATION
  Report Type: Spontaneous
  Country: PL (occurrence: PL)
  Receive Date: 20241203
  Receipt Date: 20241205
  Transmission Date: 20250114
  Serious: Yes (Congenital Anomaly, Other)
  Sender: MYLAN
  Company Number: None

PATIENT
  Sex: Male
  Weight: 3.195 kg

DRUGS (1)
  1. SERTRALINE HYDROCHLORIDE [Suspect]
     Active Substance: SERTRALINE HYDROCHLORIDE
     Indication: Product used for unknown indication
     Dosage: 1 DOSAGE FORM, QD, MOTHER WAS TAKING SERTAGEN ORALLY FROM 4TH MONTH OF PREGNANCY UNTIL DELIVERY
     Route: 064

REACTIONS (5)
  - Congenital musculoskeletal disorder [Unknown]
  - Patent ductus arteriosus [Unknown]
  - Ventricular septal defect [Unknown]
  - Atrial septal defect [Unknown]
  - Foetal exposure during pregnancy [Unknown]

NARRATIVE: CASE EVENT DATE: 20200201
